FAERS Safety Report 4928849-7 (Version None)
Quarter: 2006Q1

REPORT INFORMATION
  Report Type: 
  Country: None (occurrence: None)
  Receive Date: 20060301
  Receipt Date: 20051007
  Transmission Date: 20060701
  Serious: Yes (Hospitalization, Other)
  Sender: FDA-Public Use
  Company Number: PHEH2005US11234

PATIENT
  Age: 79 Year
  Sex: Male
  Weight: 100.68 kg

DRUGS (6)
  1. ZOMETA [Suspect]
     Indication: PROSTATE CANCER METASTATIC
     Dosage: 4 MG, UNK
     Dates: end: 20051004
  2. CHEMOTHERAPEUTICS,OTHER [Concomitant]
     Indication: PROSTATE CANCER METASTATIC
  3. COUMADIN [Concomitant]
     Dosage: 5 MG, QD
  4. MUPIROCIN [Concomitant]
     Dosage: UNK, PRN
  5. WARFARIN [Concomitant]
     Dosage: 5 MG, QD
  6. FUROSEMIDE [Concomitant]
     Indication: OEDEMA
     Dosage: 20 MG, UNK

REACTIONS (11)
  - ACCIDENTAL EXPOSURE [None]
  - BLOOD CALCIUM DECREASED [None]
  - BLOOD CREATININE INCREASED [None]
  - BLOOD PARATHYROID HORMONE INCREASED [None]
  - GENERALISED OEDEMA [None]
  - HYPOCALCAEMIA [None]
  - INTERNATIONAL NORMALISED RATIO INCREASED [None]
  - RENAL FAILURE [None]
  - STENT OCCLUSION [None]
  - URETERAL STENT INSERTION [None]
  - URINARY TRACT INFECTION [None]
